FAERS Safety Report 6377270-6 (Version None)
Quarter: 2009Q3

REPORT INFORMATION
  Report Type: 
  Country: None (occurrence: None)
  Receive Date: 20090925
  Receipt Date: 20090915
  Transmission Date: 20100115
  Serious: Yes (Death)
  Sender: FDA-Public Use
  Company Number: JP-PFIZER INC-2009270391

PATIENT
  Age: 40 Year

DRUGS (6)
  1. SUNITINIB MALATE [Suspect]
     Indication: RENAL CELL CARCINOMA
     Dosage: 37.5 MG, 1X/DAY
     Route: 048
     Dates: start: 20090330, end: 20090409
  2. NAPROXEN [Concomitant]
     Route: 048
  3. LAFUTIDINE [Concomitant]
     Route: 048
     Dates: start: 20090401
  4. LASIX [Concomitant]
     Route: 048
     Dates: start: 20090403
  5. MAGNESIUM OXIDE [Concomitant]
     Route: 048
     Dates: start: 20090403
  6. CODEINE PHOSPHATE [Concomitant]
     Route: 048
     Dates: start: 20090331

REACTIONS (1)
  - DEATH [None]
